FAERS Safety Report 16240638 (Version 4)
Quarter: 2022Q2

REPORT INFORMATION
  Report Type: Spontaneous
  Country: US (occurrence: US)
  Receive Date: 20190425
  Receipt Date: 20220525
  Transmission Date: 20220721
  Serious: Yes (Other)
  Sender: FDA-Public Use
  Company Number: US-TAKEDA-2019TUS023850

PATIENT

DRUGS (26)
  1. PREVACID [Suspect]
     Active Substance: LANSOPRAZOLE
     Indication: Gastrooesophageal reflux disease
     Dosage: 30 MILLIGRAM, QD
     Route: 048
     Dates: start: 2007
  2. PREVACID [Suspect]
     Active Substance: LANSOPRAZOLE
     Dosage: 30 MILLIGRAM, QD
     Route: 048
     Dates: start: 2004
  3. NEXIUM [Suspect]
     Active Substance: ESOMEPRAZOLE MAGNESIUM
     Indication: Gastrooesophageal reflux disease
     Dosage: 30 MILLIGRAM, QD
     Route: 048
     Dates: start: 2003
  4. NEXIUM [Suspect]
     Active Substance: ESOMEPRAZOLE MAGNESIUM
     Dosage: 40 MILLIGRAM, QD
     Route: 048
     Dates: start: 2003, end: 2012
  5. PRILOSEC [Suspect]
     Active Substance: OMEPRAZOLE MAGNESIUM
     Indication: Gastrooesophageal reflux disease
     Dosage: UNK
     Route: 048
     Dates: start: 2016
  6. OMEPRAZOLE [Suspect]
     Active Substance: OMEPRAZOLE
     Indication: Gastrooesophageal reflux disease
     Dosage: 40 MILLIGRAM, QD
     Route: 048
     Dates: start: 2012, end: 2016
  7. RANITIDINE [Concomitant]
     Active Substance: RANITIDINE
     Indication: Gastrooesophageal reflux disease
     Dosage: UNK
     Dates: start: 2016
  8. GABAPENTIN [Concomitant]
     Active Substance: GABAPENTIN
     Indication: Muscle disorder
     Dosage: UNK
     Dates: start: 2007
  9. BACLOFEN [Concomitant]
     Active Substance: BACLOFEN
     Indication: Muscle disorder
     Dosage: UNK
     Dates: start: 2007
  10. BACLOFEN [Concomitant]
     Active Substance: BACLOFEN
     Indication: Muscle spasms
  11. CHLORTHALIDONE [Concomitant]
     Active Substance: CHLORTHALIDONE
     Indication: Fluid retention
     Dosage: UNK
     Dates: start: 2018
  12. PIOGLITAZONE [Concomitant]
     Active Substance: PIOGLITAZONE
     Indication: Diabetes mellitus
     Dosage: UNK
     Dates: start: 2018
  13. POTASSIUM CHLORIDE [Concomitant]
     Active Substance: POTASSIUM CHLORIDE
     Indication: Hypokalaemic syndrome
     Dosage: UNK
     Dates: start: 2017
  14. PREDNISONE [Concomitant]
     Active Substance: PREDNISONE
     Indication: Hypokalaemic syndrome
     Dosage: UNK
     Dates: start: 2017
  15. PREDNISONE [Concomitant]
     Active Substance: PREDNISONE
     Indication: Muscle disorder
     Dosage: UNK
     Dates: start: 2007
  16. MONTELUKAST [Concomitant]
     Active Substance: MONTELUKAST SODIUM
     Indication: Multiple allergies
     Dosage: UNK
     Dates: start: 2014
  17. ROSUVASTATIN [Concomitant]
     Active Substance: ROSUVASTATIN
     Indication: Blood cholesterol
     Dosage: UNK
     Dates: start: 2017
  18. CALCITROL                          /00508501/ [Concomitant]
     Indication: Parathyroid tumour benign
     Dosage: UNK
     Dates: start: 2013
  19. VITAMIN D3 [Concomitant]
     Active Substance: CHOLECALCIFEROL
     Indication: Renal disorder
     Dosage: UNK
     Dates: start: 2010
  20. NEPHRO VITE RX [Concomitant]
     Active Substance: ASCORBIC ACID\BIOTIN\CALCIUM PANTOTHENATE\CYANOCOBALAMIN\FOLIC ACID\NIACINAMIDE\PYRIDOXINE HYDROCHLO
     Indication: Renal disorder
     Dosage: UNK
     Dates: start: 2010
  21. NEPHRO VITE RX [Concomitant]
     Active Substance: ASCORBIC ACID\BIOTIN\CALCIUM PANTOTHENATE\CYANOCOBALAMIN\FOLIC ACID\NIACINAMIDE\PYRIDOXINE HYDROCHLO
     Dosage: UNK
     Dates: start: 2018
  22. IRON [Concomitant]
     Active Substance: IRON
     Indication: Renal disorder
     Dosage: UNK
     Dates: start: 2018
  23. IRON [Concomitant]
     Active Substance: IRON
     Dosage: UNK
     Dates: start: 2017
  24. KRILL OIL [Concomitant]
     Active Substance: DIETARY SUPPLEMENT\KRILL OIL
     Indication: Blood cholesterol
     Dosage: UNK
     Dates: start: 2015
  25. EXCEDRIN                           /00110301/ [Concomitant]
     Indication: Headache
     Dosage: UNK
     Dates: start: 2013
  26. NIACIN [Concomitant]
     Active Substance: NIACIN
     Indication: Blood triglycerides
     Dosage: UNK
     Dates: start: 2017

REACTIONS (1)
  - Nephropathy [Not Recovered/Not Resolved]

NARRATIVE: CASE EVENT DATE: 20080101
